FAERS Safety Report 20509756 (Version 2)
Quarter: 2022Q2

REPORT INFORMATION
  Report Type: Spontaneous
  Country: FR (occurrence: FR)
  Receive Date: 20220224
  Receipt Date: 20220629
  Transmission Date: 20220721
  Serious: Yes (Hospitalization)
  Sender: FDA-Public Use
  Company Number: FR-SUN PHARMACEUTICAL INDUSTRIES LTD-2022RR-327974

PATIENT
  Age: 31 Year
  Sex: Male

DRUGS (6)
  1. OLANZAPINE [Interacting]
     Active Substance: OLANZAPINE
     Indication: Schizophrenia
     Dosage: 30 MILLIGRAM, DAILY
     Route: 048
     Dates: start: 20220115
  2. SERTRALINE [Interacting]
     Active Substance: SERTRALINE HYDROCHLORIDE
     Indication: Schizophrenia
     Dosage: 100 MILLIGRAM, DAILY
     Route: 048
     Dates: start: 20220113
  3. TRIMEPRAZINE [Interacting]
     Active Substance: TRIMEPRAZINE
     Indication: Schizophrenia
     Dosage: 20 MILLIGRAM, DAILY
     Route: 048
     Dates: start: 20211103
  4. PANTOPRAZOLE [Concomitant]
     Active Substance: PANTOPRAZOLE
     Indication: Product used for unknown indication
     Dosage: 1 DOSAGE FORM, DAILY
     Route: 048
  5. DISULFIRAM [Concomitant]
     Active Substance: DISULFIRAM
     Indication: Alcohol detoxification
     Dosage: UNK
     Route: 048
     Dates: end: 20220130
  6. BUSPIRONE HYDROCHLORIDE [Concomitant]
     Active Substance: BUSPIRONE HYDROCHLORIDE
     Indication: Schizophrenia
     Dosage: 10 MILLIGRAM, QOD
     Route: 048
     Dates: start: 20211215

REACTIONS (1)
  - Seizure [Recovered/Resolved with Sequelae]
